FAERS Safety Report 9959860 (Version 1)
Quarter: 2014Q1

REPORT INFORMATION
  Report Type: Spontaneous
  Country: US (occurrence: US)
  Receive Date: 20140305
  Receipt Date: 20140305
  Transmission Date: 20141002
  Serious: No
  Sender: FDA-Public Use
  Company Number: US-ABBVIE-13P-163-1106043-00

PATIENT
  Age: 39 Year
  Sex: Female
  Weight: 77.18 kg

DRUGS (8)
  1. HUMIRA [Suspect]
     Indication: RHEUMATOID ARTHRITIS
     Dates: start: 20130515
  2. SYNTHROID [Concomitant]
     Indication: HYPOTHYROIDISM
  3. METHOTREXATE [Concomitant]
     Indication: RHEUMATOID ARTHRITIS
  4. PREDNISONE [Concomitant]
     Indication: RHEUMATOID ARTHRITIS
  5. CELEBREX [Concomitant]
     Indication: PAIN
  6. CYMBALTA [Concomitant]
     Indication: DEPRESSION
  7. FOLIC ACID [Concomitant]
     Indication: VITAMIN SUPPLEMENTATION
  8. MILK THISTLE [Concomitant]
     Indication: MINERAL SUPPLEMENTATION

REACTIONS (1)
  - Injection site pain [Recovered/Resolved]
